FAERS Safety Report 7647356-4 (Version None)
Quarter: 2011Q3

REPORT INFORMATION
  Report Type: 
  Country: None (occurrence: None)
  Receive Date: 20110801
  Receipt Date: 20110719
  Transmission Date: 20111222
  Serious: Yes (Other)
  Sender: FDA-Public Use
  Company Number: US-AMGEN-USASP2011036814

PATIENT
  Age: 61 Year
  Sex: Female

DRUGS (1)
  1. ENBREL [Suspect]
     Indication: RHEUMATOID ARTHRITIS
     Dosage: 50 MG, QWK
     Dates: start: 20061109

REACTIONS (6)
  - JOINT SWELLING [None]
  - MUSCLE SPASMS [None]
  - AMNESIA [None]
  - UPPER LIMB FRACTURE [None]
  - CATARACT [None]
  - NODULE [None]
